FAERS Safety Report 13645465 (Version 1)
Quarter: 2017Q2

REPORT INFORMATION
  Report Type: Spontaneous
  Country: NL (occurrence: NL)
  Receive Date: 20170612
  Receipt Date: 20170612
  Transmission Date: 20170830
  Serious: Yes (Death)
  Sender: FDA-Public Use
  Company Number: PHHY2017NL081653

PATIENT
  Age: 53 Year
  Sex: Male

DRUGS (2)
  1. CITALOPRAM [Suspect]
     Active Substance: CITALOPRAM HYDROBROMIDE
     Indication: PRODUCT USED FOR UNKNOWN INDICATION
     Route: 065
  2. SCOPOLAMINE [Interacting]
     Active Substance: SCOPOLAMINE
     Indication: APHRODISIAC THERAPY
     Route: 065

REACTIONS (4)
  - Toxicity to various agents [Fatal]
  - Hypotension [Fatal]
  - Arrhythmia [Fatal]
  - Drug interaction [Fatal]
